FAERS Safety Report 25667715 (Version 1)
Quarter: 2025Q3

REPORT INFORMATION
  Report Type: Spontaneous
  Country: US (occurrence: US)
  Receive Date: 20250811
  Receipt Date: 20250811
  Transmission Date: 20251021
  Serious: No
  Sender: TEVA
  Company Number: US-TEVA-VS-3359946

PATIENT
  Age: 74 Year
  Sex: Male

DRUGS (5)
  1. AUSTEDO XR [Suspect]
     Active Substance: DEUTETRABENAZINE
     Indication: Product used for unknown indication
     Dosage: 1 TABLET BY MOUTH ONCE A DAY
     Route: 048
     Dates: start: 202504
  2. AUSTEDO XR [Suspect]
     Active Substance: DEUTETRABENAZINE
     Indication: Product used for unknown indication
     Dosage: 1 TABLET BY MOUTH ONCE A DAY FOR 7 DAYS
     Route: 048
     Dates: start: 2025
  3. AUSTEDO XR [Suspect]
     Active Substance: DEUTETRABENAZINE
     Indication: Product used for unknown indication
     Dosage: 1 TABLET BY MOUTH ONCE A DAY FOR 7 DAYS
     Route: 048
     Dates: start: 2025
  4. AUSTEDO XR [Suspect]
     Active Substance: DEUTETRABENAZINE
     Indication: Product used for unknown indication
     Dosage: 1 TABLET BY MOUTH ONCE A DAY FOR 7 DAYS
     Route: 048
     Dates: start: 2025
  5. AUSTEDO XR [Suspect]
     Active Substance: DEUTETRABENAZINE
     Indication: Product used for unknown indication
     Dosage: 1 TABLET BY MOUTH ONCE A DAY
     Route: 048
     Dates: start: 2025

REACTIONS (2)
  - Drug ineffective [Unknown]
  - Incorrect dose administered [Unknown]

NARRATIVE: CASE EVENT DATE: 20250101
